FAERS Safety Report 4470723-7 (Version None)
Quarter: 2004Q4

REPORT INFORMATION
  Report Type: 
  Country: None (occurrence: None)
  Receive Date: 20041006
  Receipt Date: 20040929
  Transmission Date: 20050328
  Serious: Yes (Life-Threatening)
  Sender: FDA-Public Use
  Company Number: 2004AP05023

PATIENT
  Age: 75 Year
  Sex: Male

DRUGS (2)
  1. MARCAINE [Suspect]
     Indication: SPINAL ANAESTHESIA
     Dosage: 15 MG DAILY IT
     Route: 038
  2. RANITIDINE [Suspect]

REACTIONS (9)
  - ANAESTHETIC COMPLICATION [None]
  - BLOOD PRESSURE DIASTOLIC DECREASED [None]
  - CARDIAC ARREST [None]
  - CYANOSIS [None]
  - LOSS OF CONSCIOUSNESS [None]
  - RESPIRATORY ARREST [None]
  - SICK SINUS SYNDROME [None]
  - SINUS BRADYCARDIA [None]
  - VOMITING [None]
